FAERS Safety Report 7517969-9 (Version None)
Quarter: 2011Q2

REPORT INFORMATION
  Report Type: 
  Country: None (occurrence: None)
  Receive Date: 20110523
  Receipt Date: 20110513
  Transmission Date: 20111010
  Serious: Yes (Hospitalization)
  Sender: FDA-Public Use
  Company Number: US-2011-10249

PATIENT
  Sex: Male

DRUGS (12)
  1. ACYCLOVIR [Concomitant]
  2. OXYCODONE HCL [Concomitant]
  3. LYRICA [Concomitant]
  4. BENICAN (BENICAN HYDROCHLOROTHIAZIDE) [Concomitant]
  5. BORTEZOMIB [Concomitant]
  6. ZOFRAN [Concomitant]
  7. AVELOX ABC (MOXIFLOXACIN HYDROCHLORIDE) [Concomitant]
  8. PROTONIX [Concomitant]
  9. NEURONTIN [Concomitant]
  10. BUSULFAN [Suspect]
     Indication: STEM CELL TRANSPLANT
     Dosage: 64.2 MG MILLIGRAM(S), DAILY DOSE, INTRAVENOUS, 309 MG MILLIGRAM(S), DAILY DOSE, INTRAVENOUS
     Route: 042
     Dates: start: 20110406, end: 20110409
  11. BUSULFAN [Suspect]
     Indication: STEM CELL TRANSPLANT
     Dosage: 64.2 MG MILLIGRAM(S), DAILY DOSE, INTRAVENOUS, 309 MG MILLIGRAM(S), DAILY DOSE, INTRAVENOUS
     Route: 042
     Dates: start: 20110330, end: 20110330
  12. LANTUS [Concomitant]

REACTIONS (6)
  - MUCOSAL INFLAMMATION [None]
  - DEVICE RELATED INFECTION [None]
  - FOLLICULITIS [None]
  - DERMATITIS [None]
  - PYREXIA [None]
  - TINEA VERSICOLOUR [None]
